FAERS Safety Report 6491011-3 (Version None)
Quarter: 2009Q4

REPORT INFORMATION
  Report Type: 
  Country: None (occurrence: None)
  Receive Date: 20091125
  Receipt Date: 20081105
  Transmission Date: 20100525
  Serious: Yes (Other)
  Sender: FDA-Public Use
  Company Number: TRP_05974_2008

PATIENT
  Sex: Male
  Weight: 65.7716 kg

DRUGS (11)
  1. INFERGEN [Suspect]
     Indication: HEPATITIS C
     Dosage: 9 UG QD SUBCUTANEOUS
     Route: 058
     Dates: start: 20080201, end: 20081022
  2. INFERGEN [Suspect]
     Indication: HEPATITIS C
     Dosage: 9 UG QD SUBCUTANEOUS
     Route: 058
     Dates: start: 20081023, end: 20081103
  3. INFERGEN [Suspect]
     Indication: HEPATITIS C
     Dosage: 9 UG QD SUBCUTANEOUS
     Route: 058
     Dates: start: 20081104, end: 20090103
  4. RIBAVIRIN [Suspect]
     Indication: HEPATITIS C
     Dosage: (1000 MG [400 MG QAM AND 600 MG QPM] ORAL)
     Route: 048
     Dates: start: 20080201, end: 20090110
  5. TEMAZEPAM [Concomitant]
  6. VICODIN [Concomitant]
  7. CYMBALTA [Concomitant]
  8. NEUPOGEN [Concomitant]
  9. VALTREX [Concomitant]
  10. BENADRYL [Concomitant]
  11. XANAX [Concomitant]

REACTIONS (5)
  - ANAEMIA [None]
  - FATIGUE [None]
  - INSOMNIA [None]
  - LEUKOPENIA [None]
  - NEUTROPENIA [None]
